FAERS Safety Report 17937244 (Version 2)
Quarter: 2020Q3

REPORT INFORMATION
  Report Type: Spontaneous
  Country: JP (occurrence: JP)
  Receive Date: 20200624
  Receipt Date: 20200702
  Transmission Date: 20201103
  Serious: Yes (Other)
  Sender: FDA-Public Use
  Company Number: JP-APOTEX-2020AP012743

PATIENT
  Age: 57 Year
  Sex: Female

DRUGS (5)
  1. MEILAX [Suspect]
     Active Substance: ETHYL LOFLAZEPATE
     Dosage: 2 MILLIGRAM
     Route: 065
  2. PAXIL CR [Suspect]
     Active Substance: PAROXETINE HYDROCHLORIDE
     Indication: DEPRESSION
     Dosage: 50 MILLIGRAM, 2 TABLET
     Route: 048
     Dates: start: 20191114
  3. THYRADIN S [Concomitant]
     Active Substance: LEVOTHYROXINE SODIUM
     Indication: HYPOTHYROIDISM
     Dosage: 3 DF, UNK
     Route: 065
  4. CONSTAN [ALPRAZOLAM] [Suspect]
     Active Substance: ALPRAZOLAM
     Dosage: 0.4 MILLIGRAM
     Route: 065
  5. MAINTATE [Suspect]
     Active Substance: BISOPROLOL FUMARATE
     Indication: PRODUCT USED FOR UNKNOWN INDICATION
     Dosage: 0.625 MILLIGRAM
     Route: 065

REACTIONS (2)
  - Drug level decreased [Unknown]
  - Hypothyroidism [Unknown]
